FAERS Safety Report 7806143-4 (Version None)
Quarter: 2011Q4

REPORT INFORMATION
  Report Type: 
  Country: None (occurrence: None)
  Receive Date: 20111011
  Receipt Date: 20111005
  Transmission Date: 20120403
  Serious: No
  Sender: FDA-Public Use
  Company Number: US-PFIZER INC-2011238411

PATIENT
  Sex: Female

DRUGS (1)
  1. TETRACYCLINE HCL [Suspect]
     Dosage: UNK
     Route: 042

REACTIONS (2)
  - NIGHT SWEATS [None]
  - MIDDLE INSOMNIA [None]
